FAERS Safety Report 7489655-5 (Version None)
Quarter: 2011Q2

REPORT INFORMATION
  Report Type: 
  Country: None (occurrence: None)
  Receive Date: 20110519
  Receipt Date: 20110510
  Transmission Date: 20111010
  Serious: No
  Sender: FDA-Public Use
  Company Number: US-BIOGENIDEC-2011BI011357

PATIENT
  Sex: Female

DRUGS (1)
  1. TYSABRI [Suspect]
     Indication: MULTIPLE SCLEROSIS
     Route: 042
     Dates: start: 20081006

REACTIONS (8)
  - GASTROENTERITIS VIRAL [None]
  - PANIC ATTACK [None]
  - URINARY TRACT INFECTION [None]
  - GLOSSITIS [None]
  - NEPHROLITHIASIS [None]
  - FEMALE STERILISATION [None]
  - BACK PAIN [None]
  - SINUSITIS [None]
